FAERS Safety Report 8368721-6 (Version None)
Quarter: 2012Q2

REPORT INFORMATION
  Report Type: 
  Country: None (occurrence: None)
  Receive Date: 20120518
  Receipt Date: 20120510
  Transmission Date: 20120825
  Serious: No
  Sender: FDA-Public Use
  Company Number: US-BIOGENIDEC-2012BI016808

PATIENT
  Sex: Female

DRUGS (2)
  1. TYSABRI [Suspect]
     Route: 042
     Dates: start: 20110916
  2. TYSABRI [Suspect]
     Indication: MULTIPLE SCLEROSIS
     Route: 042
     Dates: start: 20070821, end: 20110315

REACTIONS (2)
  - MUSCLE SPASMS [None]
  - MUSCULOSKELETAL STIFFNESS [None]
